FAERS Safety Report 4702284-9 (Version None)
Quarter: 2005Q2

REPORT INFORMATION
  Report Type: 
  Country: None (occurrence: None)
  Receive Date: 20050628
  Receipt Date: 20050628
  Transmission Date: 20051028
  Serious: Yes (Life-Threatening, Hospitalization, Disabling)
  Sender: FDA-Public Use
  Company Number: None

PATIENT
  Age: 32 Year
  Sex: Female
  Weight: 62.5964 kg

DRUGS (1)
  1. MOXIFLOXACIN INJECTION [Suspect]

REACTIONS (4)
  - DEPRESSION [None]
  - MUSCULOSKELETAL PAIN [None]
  - PANIC ATTACK [None]
  - TINNITUS [None]
